APPROVED DRUG PRODUCT: AMITRIPTYLINE HYDROCHLORIDE
Active Ingredient: AMITRIPTYLINE HYDROCHLORIDE
Strength: 50MG
Dosage Form/Route: TABLET;ORAL
Application: A088855 | Product #001
Applicant: SUPERPHARM CORP
Approved: Nov 13, 1984 | RLD: No | RS: No | Type: DISCN